FAERS Safety Report 24275934 (Version 1)
Quarter: 2024Q3

REPORT INFORMATION
  Report Type: Report from Study
  Country: CN (occurrence: CN)
  Receive Date: 20240903
  Receipt Date: 20240903
  Transmission Date: 20241017
  Serious: Yes (Other)
  Sender: SHENZHEN TECHDOW PHARMACEUTICAL
  Company Number: CN-Techdow-2024Techdow000184

PATIENT
  Age: 59 Year
  Sex: Male
  Weight: 50 kg

DRUGS (3)
  1. HEPARIN SODIUM [Suspect]
     Active Substance: HEPARIN SODIUM
     Indication: Anticoagulant therapy
     Dosage: 6500UNIT
  2. HEPARIN SODIUM [Suspect]
     Active Substance: HEPARIN SODIUM
     Indication: Anticoagulant therapy
     Dosage: 2000UNIT,SINGLE DOSE
  3. HEPARIN SODIUM [Suspect]
     Active Substance: HEPARIN SODIUM
     Indication: Anticoagulant therapy
     Dosage: 2000UNIT,SINGLE DOSE

REACTIONS (2)
  - Thrombosis in device [Recovered/Resolved]
  - Heparin resistance [Unknown]
